FAERS Safety Report 10926899 (Version 7)
Quarter: 2015Q2

REPORT INFORMATION
  Report Type: Spontaneous
  Country: IL (occurrence: IL)
  Receive Date: 20150318
  Receipt Date: 20150529
  Transmission Date: 20150821
  Serious: Yes (Life-Threatening, Hospitalization)
  Sender: FDA-Public Use
  Company Number: IL-ASTRAZENECA-2015SE23327

PATIENT
  Age: 25635 Day
  Sex: Female

DRUGS (17)
  1. NOVORAPID [Concomitant]
     Active Substance: INSULIN ASPART
     Dosage: BEFORE MEALS
  2. PREDNISONE. [Concomitant]
     Active Substance: PREDNISONE
  3. FUSID [Concomitant]
     Active Substance: FUROSEMIDE
  4. ALDOSPIRONE [Concomitant]
     Active Substance: SPIRONOLACTONE
  5. BONDORMIN [Concomitant]
  6. LANTOS [Concomitant]
     Dosage: 74 UNITS IN THE MORNING
  7. PROLIA [Concomitant]
     Active Substance: DENOSUMAB
  8. LIPITOR [Concomitant]
     Active Substance: ATORVASTATIN CALCIUM
  9. URSOLIT [Concomitant]
  10. CEROTIDE [Concomitant]
  11. DIOVAN [Concomitant]
     Active Substance: VALSARTAN
  12. BYDUREON [Suspect]
     Active Substance: EXENATIDE
     Indication: TYPE 2 DIABETES MELLITUS
     Route: 065
     Dates: start: 20150220, end: 201504
  13. DIMITONE [Concomitant]
  14. CALCIUM [Concomitant]
     Active Substance: CALCIUM
  15. VITAMIN D [Concomitant]
     Active Substance: CHOLECALCIFEROL
  16. CONTROLOC [Concomitant]
     Active Substance: PANTOPRAZOLE SODIUM
  17. MABTHERA [Concomitant]
     Active Substance: RITUXIMAB

REACTIONS (11)
  - Depression [Unknown]
  - Asthenia [Recovered/Resolved]
  - Dizziness [Unknown]
  - Injection site nodule [Unknown]
  - Blood pressure decreased [Recovered/Resolved]
  - Suicidal ideation [Unknown]
  - Vision blurred [Unknown]
  - Injection site pain [Recovered/Resolved]
  - Hypoglycaemia [Unknown]
  - Nausea [Unknown]
  - Blood glucose decreased [Recovered/Resolved]

NARRATIVE: CASE EVENT DATE: 20150326
